FAERS Safety Report 4657630-1 (Version None)
Quarter: 2005Q2

REPORT INFORMATION
  Report Type: 
  Country: None (occurrence: None)
  Receive Date: 20050510
  Receipt Date: 20050412
  Transmission Date: 20051028
  Serious: Yes (Hospitalization)
  Sender: FDA-Public Use
  Company Number: CA-BRISTOL-MYERS SQUIBB COMPANY-12936373

PATIENT
  Age: 41 Year
  Sex: Female

DRUGS (8)
  1. TAXOL [Suspect]
     Indication: BREAST CANCER
     Route: 042
     Dates: start: 20050228, end: 20050301
  2. CARBOPLATIN [Suspect]
     Indication: BREAST CANCER
  3. ETOPOSIDE [Suspect]
     Indication: BREAST CANCER
  4. FILGRASTIM [Suspect]
     Indication: BREAST CANCER
     Route: 058
     Dates: start: 20050314, end: 20050314
  5. EPREX [Suspect]
     Indication: ANAEMIA
     Route: 058
     Dates: start: 20050315, end: 20050315
  6. DEXAMETHASONE [Concomitant]
     Route: 048
     Dates: start: 20050301, end: 20050303
  7. ONDANSETRON [Concomitant]
     Route: 048
     Dates: start: 20050301, end: 20050303
  8. PROCHLORPERAZINE [Concomitant]
     Route: 048
     Dates: start: 20050301

REACTIONS (2)
  - PERICARDIAL EFFUSION [None]
  - PNEUMONITIS [None]
